FAERS Safety Report 6173302-9 (Version None)
Quarter: 2009Q2

REPORT INFORMATION
  Report Type: 
  Country: None (occurrence: None)
  Receive Date: 20090428
  Receipt Date: 20090416
  Transmission Date: 20091009
  Serious: Yes (Other)
  Sender: FDA-Public Use
  Company Number: 220002N09FRA

PATIENT
  Age: 30 Year
  Sex: Male
  Weight: 72 kg

DRUGS (3)
  1. SAIZEN [Suspect]
     Indication: GROWTH HORMONE DEFICIENCY
     Dosage: 0.24 MG, 1 IN 1 DAYS, SUBCUTANEOUS
     Route: 058
     Dates: start: 20040209
  2. GONAL-F [Concomitant]
  3. HCG (CHRONIC GONADOTROPHIN) [Concomitant]

REACTIONS (1)
  - MENINGIOMA [None]
